FAERS Safety Report 23478227 (Version 1)
Quarter: 2024Q1

REPORT INFORMATION
  Report Type: Report from Study
  Country: US (occurrence: US)
  Receive Date: 20240204
  Receipt Date: 20240204
  Transmission Date: 20240410
  Serious: No
  Sender: FDA-Public Use
  Company Number: US-EXELIXIS-CABO-23070411

PATIENT
  Sex: Male

DRUGS (2)
  1. CABOMETYX [Suspect]
     Active Substance: CABOZANTINIB S-MALATE
     Indication: Renal cancer
     Dosage: 60 MG, QD
     Route: 048
     Dates: start: 202308
  2. INLYTA [Concomitant]
     Active Substance: AXITINIB
     Dosage: UNK

REACTIONS (3)
  - Blister [Unknown]
  - Oropharyngeal pain [Unknown]
  - Stomatitis [Unknown]
